FAERS Safety Report 8044258-9 (Version None)
Quarter: 2012Q1

REPORT INFORMATION
  Report Type: 
  Country: None (occurrence: None)
  Receive Date: 20120113
  Receipt Date: 20120111
  Transmission Date: 20120608
  Serious: No
  Sender: FDA-Public Use
  Company Number: US-BAYER-2012-003753

PATIENT
  Sex: Female

DRUGS (1)
  1. MIRENA [Suspect]
     Indication: CONTRACEPTION
     Dosage: 20 MCG/24HR, CONT
     Route: 015
     Dates: start: 20100301

REACTIONS (7)
  - HEADACHE [None]
  - MOOD ALTERED [None]
  - MOOD SWINGS [None]
  - HOT FLUSH [None]
  - ANGER [None]
  - DIZZINESS [None]
  - MUSCLE SPASMS [None]
